FAERS Safety Report 6243300-5 (Version None)
Quarter: 2009Q2

REPORT INFORMATION
  Report Type: 
  Country: None (occurrence: None)
  Receive Date: 20090624
  Receipt Date: 20090618
  Transmission Date: 20091009
  Serious: Yes (Death)
  Sender: FDA-Public Use
  Company Number: PHEH2009US06262

PATIENT
  Sex: Female

DRUGS (11)
  1. EXJADE [Suspect]
     Indication: IRON METABOLISM DISORDER
     Dosage: 1000 MG, QD
     Route: 048
     Dates: start: 20090306
  2. GABAPENTIN [Concomitant]
     Route: 048
  3. GEMFIBROZIL [Concomitant]
     Route: 048
  4. PACERONE [Concomitant]
     Route: 048
  5. CITALOPRAM HYDROBROMIDE [Concomitant]
     Route: 048
  6. OMEPRAZOLE [Concomitant]
     Route: 048
  7. VITAMIN B COMPLEX CAP [Concomitant]
     Route: 048
  8. ASPIRIN [Concomitant]
     Route: 048
  9. CLONAZEPAM [Concomitant]
     Route: 048
  10. MELATONIN [Concomitant]
     Route: 048
  11. PREDNISONE [Concomitant]
     Route: 048

REACTIONS (4)
  - CHRONIC OBSTRUCTIVE PULMONARY DISEASE [None]
  - PNEUMONIA [None]
  - RESPIRATORY FAILURE [None]
  - RESPIRATORY TRACT INFECTION [None]
